FAERS Safety Report 5161080-1 (Version None)
Quarter: 2006Q4

REPORT INFORMATION
  Report Type: 
  Country: None (occurrence: None)
  Receive Date: 20061121
  Receipt Date: 20061107
  Transmission Date: 20070319
  Serious: Yes (Other)
  Sender: FDA-Public Use
  Company Number: 2006136251

PATIENT
  Age: 15 Year
  Sex: Female

DRUGS (2)
  1. ZARONTIN [Suspect]
     Indication: EPILEPSY
     Dosage: 250 MG (1 D)
  2. LAMICTAL [Concomitant]

REACTIONS (3)
  - CONVULSION [None]
  - DRUG INEFFECTIVE [None]
  - PHOTOPHOBIA [None]
